FAERS Safety Report 12520713 (Version 1)
Quarter: 2016Q3

REPORT INFORMATION
  Report Type: Spontaneous
  Country: US (occurrence: US)
  Receive Date: 20160701
  Receipt Date: 20160701
  Transmission Date: 20161109
  Serious: No
  Sender: FDA-Public Use
  Company Number: US-BAYER-2016-129731

PATIENT
  Sex: Female

DRUGS (2)
  1. CLARITIN [Suspect]
     Active Substance: LORATADINE
     Indication: RASH
  2. CLARITIN [Suspect]
     Active Substance: LORATADINE
     Indication: EYE IRRITATION
     Dosage: UNK

REACTIONS (2)
  - Drug prescribing error [None]
  - Circumstance or information capable of leading to device use error [None]
